FAERS Safety Report 17797315 (Version 1)
Quarter: 2020Q2

REPORT INFORMATION
  Report Type: Spontaneous
  Country: US (occurrence: US)
  Receive Date: 20200515
  Receipt Date: 20200515
  Transmission Date: 20200714
  Serious: Yes (Disabling)
  Sender: FDA-Public Use
  Company Number: None

PATIENT
  Age: 77 Year
  Sex: Female

DRUGS (1)
  1. BEOVU [Suspect]
     Active Substance: BROLUCIZUMAB-DBLL
     Indication: MACULAR DEGENERATION
     Dosage: ?          OTHER FREQUENCY:EVERY 8 WEEKS;?
     Route: 031
     Dates: start: 20200108, end: 20200506

REACTIONS (1)
  - Blindness unilateral [None]

NARRATIVE: CASE EVENT DATE: 20200506
